FAERS Safety Report 22154613 (Version 1)
Quarter: 2023Q1

REPORT INFORMATION
  Report Type: Spontaneous
  Country: CA (occurrence: CA)
  Receive Date: 20230330
  Receipt Date: 20230330
  Transmission Date: 20230417
  Serious: Yes (Other)
  Sender: FDA-Public Use
  Company Number: CA-ASTELLAS-2023US009891

PATIENT
  Age: 63 Year
  Sex: Male

DRUGS (7)
  1. ELIGARD [Suspect]
     Active Substance: LEUPROLIDE ACETATE
     Indication: Prostate cancer
     Dosage: 22.5 MG, EVERY 3 MONTHS
     Route: 058
  2. ELIGARD [Suspect]
     Active Substance: LEUPROLIDE ACETATE
     Dosage: UNK, UNKNOWN FREQ. (RE-STARTED DOSE)
     Route: 058
  3. ENZALUTAMIDE [Suspect]
     Active Substance: ENZALUTAMIDE
     Indication: Prostate cancer
     Route: 048
     Dates: start: 2020
  4. LUPRON [Suspect]
     Active Substance: LEUPROLIDE ACETATE
     Indication: Prostate cancer
     Dosage: 22.5 MG, UNKNOWN FREQ. (1ST INJECTION)
     Route: 030
     Dates: start: 202101, end: 2021
  5. LUPRON [Suspect]
     Active Substance: LEUPROLIDE ACETATE
     Dosage: 22.5 MG, UNKNOWN FREQ. (2ND INJECTION)
     Route: 030
     Dates: start: 202104, end: 2021
  6. LUPRON [Suspect]
     Active Substance: LEUPROLIDE ACETATE
     Dosage: 22.5 MG, UNKNOWN FREQ. (3RD INJECTION)
     Route: 030
     Dates: start: 202107, end: 2021
  7. LUPRON [Suspect]
     Active Substance: LEUPROLIDE ACETATE
     Dosage: 22.5 MG, UNKNOWN FREQ. (4TH INJECTION)
     Route: 030
     Dates: start: 202110

REACTIONS (5)
  - Malignant neoplasm progression [Unknown]
  - Injection site necrosis [Unknown]
  - Injection site ulcer [Unknown]
  - Injection site granuloma [Unknown]
  - Blood testosterone increased [Unknown]

NARRATIVE: CASE EVENT DATE: 20200101
